FAERS Safety Report 6145678-X (Version None)
Quarter: 2009Q2

REPORT INFORMATION
  Report Type: 
  Country: None (occurrence: None)
  Receive Date: 20090403
  Receipt Date: 20090319
  Transmission Date: 20091009
  Serious: Yes (Hospitalization)
  Sender: FDA-Public Use
  Company Number: 8044370

PATIENT
  Age: 45 Year
  Sex: Female

DRUGS (8)
  1. PREDNISOLONE [Suspect]
     Indication: LYMPHOMA
     Dosage: 100 MG/D
  2. CORTICOSTEROIDS [Concomitant]
  3. VINCRISTINE [Suspect]
  4. DOXORUBICIN HCL [Suspect]
  5. DOXORUBICIN HCL [Suspect]
  6. DOXORUBICIN HCL [Suspect]
  7. RITUXIMAB [Suspect]
  8. CYCLOPHOSPHAMIDE [Suspect]

REACTIONS (6)
  - CHEST PAIN [None]
  - COUGH [None]
  - NEUTROPENIA [None]
  - PARAESTHESIA [None]
  - PNEUMOCYSTIS JIROVECI PNEUMONIA [None]
  - WHITE BLOOD CELL COUNT DECREASED [None]
